FAERS Safety Report 10400414 (Version 3)
Quarter: 2018Q1

REPORT INFORMATION
  Report Type: Spontaneous
  Country: US (occurrence: US)
  Receive Date: 20140821
  Receipt Date: 20180319
  Transmission Date: 20180508
  Serious: No
  Sender: FDA-Public Use
  Company Number: US-ASTRAZENECA-2013SE81193

PATIENT
  Age: 58 Year
  Sex: Female
  Weight: 93.4 kg

DRUGS (27)
  1. METOPROLOL. [Suspect]
     Active Substance: METOPROLOL
     Indication: CARDIAC DISORDER
     Dosage: 75.0MG UNKNOWN
     Route: 065
  2. LEFLUNOMIDE. [Concomitant]
     Active Substance: LEFLUNOMIDE
     Indication: RHEUMATOID ARTHRITIS
     Dates: start: 20180302
  3. SYMBICORT [Suspect]
     Active Substance: BUDESONIDE\FORMOTEROL FUMARATE DIHYDRATE
     Indication: COUGH
     Dosage: 160 4.5MCG 2 PUFFS TWO TIMES A DAY
     Route: 055
     Dates: start: 201207
  4. OMEPRAZOLE. [Suspect]
     Active Substance: OMEPRAZOLE
     Indication: ASTHMA
     Route: 048
  5. FLOVENT [Concomitant]
     Active Substance: FLUTICASONE PROPIONATE
     Indication: ASTHMA
     Route: 045
  6. FLOVENT [Concomitant]
     Active Substance: FLUTICASONE PROPIONATE
     Indication: BRONCHITIS
     Route: 045
  7. SYMBICORT [Suspect]
     Active Substance: BUDESONIDE\FORMOTEROL FUMARATE DIHYDRATE
     Indication: ASTHMA
     Dosage: 160 4.5MCG 2 PUFFS TWO TIMES A DAY
     Route: 055
     Dates: start: 201207
  8. SYMBICORT [Suspect]
     Active Substance: BUDESONIDE\FORMOTEROL FUMARATE DIHYDRATE
     Indication: ASTHMA
     Dosage: 160 UG EVERY 12 HOURS
     Route: 055
     Dates: start: 2015
  9. SYMBICORT [Suspect]
     Active Substance: BUDESONIDE\FORMOTEROL FUMARATE DIHYDRATE
     Indication: ASTHMA
     Dosage: UNK UNKNOWN
     Route: 055
     Dates: start: 201602
  10. VITAMIN B12 SHOT [Concomitant]
  11. SYMBICORT [Suspect]
     Active Substance: BUDESONIDE\FORMOTEROL FUMARATE DIHYDRATE
     Indication: ASTHMA
     Dosage: 160 4.5MCG 2 PUFFS TWO TIMES A DAY
     Route: 055
     Dates: start: 201211
  12. CALCIUM [Concomitant]
     Active Substance: CALCIUM
  13. SYMBICORT [Suspect]
     Active Substance: BUDESONIDE\FORMOTEROL FUMARATE DIHYDRATE
     Indication: NASAL CONGESTION
     Dosage: 160 4.5MCG 2 PUFFS TWO TIMES A DAY
     Route: 055
     Dates: start: 201211
  14. SYMBICORT [Suspect]
     Active Substance: BUDESONIDE\FORMOTEROL FUMARATE DIHYDRATE
     Indication: NASAL CONGESTION
     Dosage: 160 UG EVERY 12 HOURS
     Route: 055
     Dates: start: 2015
  15. SINGULAIR [Concomitant]
     Active Substance: MONTELUKAST SODIUM
     Indication: ASTHMA
     Route: 048
  16. PROVENTIL HFA RESCUE INHALER [Concomitant]
     Indication: ASTHMA
     Dosage: 90 UG AS REQUIRED
     Route: 055
  17. HYDROCHLOROTHIAZIDE. [Concomitant]
     Active Substance: HYDROCHLOROTHIAZIDE
     Indication: PERIPHERAL SWELLING
  18. SYMBICORT [Suspect]
     Active Substance: BUDESONIDE\FORMOTEROL FUMARATE DIHYDRATE
     Indication: NASAL CONGESTION
     Dosage: 160 4.5MCG 2 PUFFS TWO TIMES A DAY
     Route: 055
     Dates: start: 201207
  19. SYMBICORT [Suspect]
     Active Substance: BUDESONIDE\FORMOTEROL FUMARATE DIHYDRATE
     Indication: COUGH
     Dosage: 160 4.5MCG 2 PUFFS TWO TIMES A DAY
     Route: 055
     Dates: start: 201211
  20. OTC VITAMIN D3 [Concomitant]
  21. FLOVENT [Concomitant]
     Active Substance: FLUTICASONE PROPIONATE
     Indication: ASTHMA
     Route: 045
     Dates: end: 20131101
  22. MONTELUKAST SODIUM. [Concomitant]
     Active Substance: MONTELUKAST SODIUM
     Indication: ASTHMA
     Dosage: 10.0MG UNKNOWN
     Route: 048
  23. SYMBICORT [Suspect]
     Active Substance: BUDESONIDE\FORMOTEROL FUMARATE DIHYDRATE
     Indication: COUGH
     Dosage: 160 UG EVERY 12 HOURS
     Route: 055
     Dates: start: 2015
  24. SYMBICORT [Suspect]
     Active Substance: BUDESONIDE\FORMOTEROL FUMARATE DIHYDRATE
     Indication: COUGH
     Dosage: UNK UNKNOWN
     Route: 055
     Dates: start: 201602
  25. SYMBICORT [Suspect]
     Active Substance: BUDESONIDE\FORMOTEROL FUMARATE DIHYDRATE
     Indication: NASAL CONGESTION
     Dosage: UNK UNKNOWN
     Route: 055
     Dates: start: 201602
  26. FLOVENT [Concomitant]
     Active Substance: FLUTICASONE PROPIONATE
     Indication: BRONCHITIS
     Route: 045
     Dates: end: 20131101
  27. OTC MULTIVITAMIN [Concomitant]

REACTIONS (9)
  - Fall [Unknown]
  - Candida infection [Unknown]
  - Pruritus [Unknown]
  - Peripheral swelling [Unknown]
  - Limb injury [Unknown]
  - Off label use [Unknown]
  - Fungal skin infection [Unknown]
  - Cough [Unknown]
  - Product use in unapproved indication [Unknown]

NARRATIVE: CASE EVENT DATE: 201310
